FAERS Safety Report 5922961-1 (Version None)
Quarter: 2008Q4

REPORT INFORMATION
  Report Type: 
  Country: None (occurrence: None)
  Receive Date: 20081018
  Receipt Date: 20081007
  Transmission Date: 20090506
  Serious: Yes (Other)
  Sender: FDA-Public Use
  Company Number: US-PFIZER INC-2008020292

PATIENT
  Sex: Female
  Weight: 61.2 kg

DRUGS (6)
  1. CHANTIX [Suspect]
     Indication: SMOKING CESSATION THERAPY
     Route: 048
     Dates: start: 20071215, end: 20080714
  2. LEXAPRO [Interacting]
     Indication: DEPRESSION
     Dosage: DAILY DOSE:10MG
     Dates: start: 20070801
  3. VALTREX [Concomitant]
     Dates: start: 20070801
  4. LODINE [Concomitant]
     Dates: start: 20070801
  5. ZANTAC [Concomitant]
     Dates: start: 20070801
  6. TRAZODONE HCL [Concomitant]
     Dates: start: 20070801

REACTIONS (7)
  - ABDOMINAL DISCOMFORT [None]
  - DEPRESSION [None]
  - DIZZINESS [None]
  - DRUG INTERACTION [None]
  - FATIGUE [None]
  - HYPERPHAGIA [None]
  - MALAISE [None]
